APPROVED DRUG PRODUCT: ZIPRASIDONE HYDROCHLORIDE
Active Ingredient: ZIPRASIDONE HYDROCHLORIDE
Strength: EQ 80MG BASE
Dosage Form/Route: CAPSULE;ORAL
Application: A202395 | Product #004
Applicant: MYLAN PHARMACEUTICALS INC
Approved: Oct 10, 2013 | RLD: No | RS: No | Type: DISCN